FAERS Safety Report 26195737 (Version 1)
Quarter: 2025Q4

REPORT INFORMATION
  Report Type: Spontaneous
  Country: US (occurrence: US)
  Receive Date: 20251224
  Receipt Date: 20251224
  Transmission Date: 20260118
  Serious: No
  Sender: CELLTRION
  Company Number: US-CELLTRION INC.-2025US030916

PATIENT

DRUGS (19)
  1. RITUXIMAB [Suspect]
     Active Substance: RITUXIMAB
     Indication: Plasmablastic lymphoma
     Dosage: COMPLETED CYCLE ONE (C1) OF R-EPOCH OVER A FIVE-DAY PERIOD
     Route: 042
  2. RITUXIMAB [Suspect]
     Active Substance: RITUXIMAB
     Dosage: C2 OF R-EPOCH WAS ADMINISTERED OVER FIVE DAYS, CONSISTING OF R-EPOCH GIVEN VIA IV OVER FIVE DAYS
     Route: 042
  3. RITUXIMAB [Suspect]
     Active Substance: RITUXIMAB
     Dosage: C3 OF R-EPOCH WAS ADMINISTERED OVER FIVE DAYS, AND THE PATIENT RECEIVED A DOSE OF IT CHEMOTHERAPY
     Route: 042
  4. RITUXIMAB [Suspect]
     Active Substance: RITUXIMAB
     Dosage: C4 OF R-EPOCH WAS ADMINISTERED OVER FIVE DAYS
     Route: 042
  5. METHOTREXATE [Suspect]
     Active Substance: METHOTREXATE
     Indication: Plasmablastic lymphoma
     Dosage: PATIENT RECEIVED ONE DOSE OF IT CHEMOTHERAPY (METHOTREXATE, CYTARABINE, HYDROCORTISONE)
  6. METHOTREXATE [Suspect]
     Active Substance: METHOTREXATE
     Dosage: AFTER COMPLETING C2, THE PATIENT WAS GIVEN A DOSE OF IT CHEMOTHERAPY.
  7. METHOTREXATE [Suspect]
     Active Substance: METHOTREXATE
     Dosage: C3 OF R-EPOCH WAS ADMINISTERED OVER FIVE DAYS, AND THE PATIENT RECEIVED A DOSE OF IT CHEMOTHERAPY
  8. METHOTREXATE [Suspect]
     Active Substance: METHOTREXATE
     Dosage: C3 OF R-EPOCH WAS ADMINISTERED OVER FIVE DAYS, AND THE PATIENT RECEIVED A DOSE OF IT CHEMOTHERAPY
  9. CYTARABINE [Suspect]
     Active Substance: CYTARABINE
     Indication: Plasmablastic lymphoma
     Dosage: PATIENT RECEIVED ONE DOSE OF IT CHEMOTHERAPY (METHOTREXATE, CYTARABINE, HYDROCORTISONE)
  10. CYTARABINE [Suspect]
     Active Substance: CYTARABINE
     Dosage: AFTER COMPLETING C2, THE PATIENT WAS GIVEN A DOSE OF IT CHEMOTHERAPY
  11. CYTARABINE [Suspect]
     Active Substance: CYTARABINE
     Dosage: C3 OF R-EPOCH WAS ADMINISTERED OVER FIVE DAYS, AND THE PATIENT RECEIVED A DOSE OF IT CHEMOTHERAPY
  12. HYDROCORTISONE [Suspect]
     Active Substance: HYDROCORTISONE
     Indication: Plasmablastic lymphoma
     Dosage: PATIENT RECEIVED ONE DOSE OF IT CHEMOTHERAPY (METHOTREXATE, CYTARABINE, HYDROCORTISONE)
  13. HYDROCORTISONE [Suspect]
     Active Substance: HYDROCORTISONE
     Dosage: AFTER COMPLETING C2, THE PATIENT WAS GIVEN A DOSE OF IT CHEMOTHERAPY.
  14. HYDROCORTISONE [Suspect]
     Active Substance: HYDROCORTISONE
     Dosage: C3 OF R-EPOCH WAS ADMINISTERED OVER FIVE DAYS, AND THE PATIENT RECEIVED A DOSE OF IT CHEMOTHERAPY
  15. ARIPIPRAZOLE [Concomitant]
     Active Substance: ARIPIPRAZOLE
  16. CITALOPRAM [Concomitant]
     Active Substance: CITALOPRAM
  17. ALLOPURINOL [Concomitant]
     Active Substance: ALLOPURINOL
     Indication: Prophylaxis
     Dosage: UNK
  18. ACYCLOVIR [Concomitant]
     Active Substance: ACYCLOVIR
     Indication: Prophylaxis
     Dosage: UNK
  19. BICTEGRAVIR\EMTRICITABINE\TENOFOVIR ALAFENAMIDE [Concomitant]
     Active Substance: BICTEGRAVIR\EMTRICITABINE\TENOFOVIR ALAFENAMIDE

REACTIONS (2)
  - Therapy partial responder [Unknown]
  - Intentional product use issue [Unknown]
